FAERS Safety Report 9646431 (Version 1)
Quarter: 2013Q4

REPORT INFORMATION
  Report Type: Other
  Country: CN (occurrence: CN)
  Receive Date: 20131025
  Receipt Date: 20131025
  Transmission Date: 20140711
  Serious: Yes (Death)
  Sender: FDA-Public Use
  Company Number: CN-BRISTOL-MYERS SQUIBB COMPANY-19654144

PATIENT
  Age: 54 Year
  Sex: Male

DRUGS (2)
  1. CETUXIMAB [Suspect]
     Indication: ADENOCARCINOMA OF COLON
     Dosage: REDUCED TO 250MG/M2:UNK-24NOV12?250MG/M2:20DEC12-16JAN13:22DAYS:1 IN 1WK:INF
     Route: 042
     Dates: start: 20120501, end: 20130116
  2. IRINOTECAN [Concomitant]
     Indication: ADENOCARCINOMA OF COLON
     Route: 042
     Dates: start: 20120218, end: 20120315

REACTIONS (3)
  - Hepatorenal syndrome [Fatal]
  - Nephrotic syndrome [Fatal]
  - Renal failure [Fatal]
